FAERS Safety Report 12091213 (Version 1)
Quarter: 2016Q1

REPORT INFORMATION
  Report Type: Spontaneous
  Country: IT (occurrence: IT)
  Receive Date: 20160218
  Receipt Date: 20160218
  Transmission Date: 20160526
  Serious: Yes (Hospitalization)
  Sender: FDA-Public Use
  Company Number: IT-BAYER-2016-031334

PATIENT
  Age: 81 Year
  Sex: Female

DRUGS (8)
  1. TAREG [Concomitant]
     Active Substance: VALSARTAN
     Indication: HYPERTENSION
     Dosage: DAILY DOSE 160 MG
     Route: 048
     Dates: start: 20141105, end: 20151105
  2. GLIBOMET [Interacting]
     Active Substance: GLYBURIDE\METFORMIN HYDROCHLORIDE
     Indication: DIABETES MELLITUS
     Dosage: DAILY DOSE 1.5 DF
     Route: 048
     Dates: start: 20141105, end: 20151105
  3. RESPICUR [Concomitant]
     Indication: RESPIRATORY FAILURE
     Dosage: DAILY DOSE 200 MG
     Route: 048
     Dates: start: 20141105, end: 20151105
  4. CARDIOASPIRIN [Suspect]
     Active Substance: ASPIRIN
     Dosage: DAILY DOSE 1 DF
     Route: 048
     Dates: start: 20141105
  5. FOSTER [Concomitant]
     Active Substance: BECLOMETHASONE\FORMOTEROL
     Indication: RESPIRATORY FAILURE
     Dosage: DAILY DOSE 1 DF
     Route: 055
     Dates: start: 20141105, end: 20151105
  6. LASIX [Concomitant]
     Active Substance: FUROSEMIDE
     Dosage: DAILY DOSE 25 MG
     Route: 048
     Dates: start: 20141105, end: 20151105
  7. TORVAST [Concomitant]
     Active Substance: ATORVASTATIN
     Dosage: DAILY DOSE 20 MG
     Route: 048
     Dates: start: 20141105, end: 20151105
  8. LEVOXACIN [Concomitant]
     Active Substance: LEVOFLOXACIN
     Indication: COUGH

REACTIONS (4)
  - Hyperhidrosis [Recovered/Resolved]
  - Hypoglycaemia [Recovered/Resolved]
  - Asthenia [Recovered/Resolved]
  - Labelled drug-drug interaction medication error [Recovered/Resolved]

NARRATIVE: CASE EVENT DATE: 20151105
